FAERS Safety Report 16766943 (Version 1)
Quarter: 2019Q4

REPORT INFORMATION
  Report Type: Spontaneous
  Country: US (occurrence: US)
  Receive Date: 20190902
  Receipt Date: 20190902
  Transmission Date: 20200122
  Serious: No
  Sender: FDA-Public Use
  Company Number: None

PATIENT
  Age: 8 Year
  Sex: Female

DRUGS (2)
  1. MIRALAX [Suspect]
     Active Substance: POLYETHYLENE GLYCOL 3350
     Indication: CONSTIPATION
     Dosage: ?          QUANTITY:2 CAPFULS;?
     Route: 048
     Dates: start: 20190211, end: 20190310
  2. FLINTSTONES VITAMINS [Concomitant]

REACTIONS (9)
  - Confusional state [None]
  - Choking [None]
  - Aggression [None]
  - Motor dysfunction [None]
  - Anxiety [None]
  - Poverty of speech [None]
  - Panic attack [None]
  - Chest pain [None]
  - Obsessive-compulsive disorder [None]

NARRATIVE: CASE EVENT DATE: 20190310
